FAERS Safety Report 9516330 (Version 1)
Quarter: 2013Q3

REPORT INFORMATION
  Report Type: Spontaneous
  Country: BR (occurrence: None)
  Receive Date: 20130909
  Receipt Date: 20130909
  Transmission Date: 20140515
  Serious: Yes (Other)
  Sender: FDA-Public Use
  Company Number: DSU-2013-04462

PATIENT
  Age: 81 Year
  Sex: Female

DRUGS (3)
  1. OLMETEC HCT [Suspect]
     Indication: HYPERTENSION
     Dosage: 40/12.5 MG
     Route: 048
     Dates: start: 20130627
  2. EUTHYROX (LEVOTHYROXINE SODIUM) [Concomitant]
  3. PROPRANOL [Concomitant]

REACTIONS (1)
  - Joint surgery [None]
